FAERS Safety Report 6749747-2 (Version None)
Quarter: 2010Q2

REPORT INFORMATION
  Report Type: 
  Country: None (occurrence: None)
  Receive Date: 20100527
  Receipt Date: 20100527
  Transmission Date: 20101027
  Serious: Yes (Other)
  Sender: FDA-Public Use
  Company Number: None

PATIENT
  Sex: Male
  Weight: 90.5 kg

DRUGS (4)
  1. TORISEL [Suspect]
     Indication: RENAL CELL CARCINOMA
     Dosage: 25 MG IV Q WEEK
     Route: 042
     Dates: start: 20100428
  2. TORISEL [Suspect]
     Indication: RENAL CELL CARCINOMA
     Dosage: 25 MG IV Q WEEK
     Route: 042
     Dates: start: 20100505
  3. ZYRTEC [Concomitant]
  4. VALTREX [Concomitant]

REACTIONS (1)
  - RENAL FAILURE ACUTE [None]
